FAERS Safety Report 22354704 (Version 1)
Quarter: 2023Q2

REPORT INFORMATION
  Report Type: Spontaneous
  Country: US (occurrence: None)
  Receive Date: 20230522
  Receipt Date: 20230522
  Transmission Date: 20230722
  Serious: No
  Sender: FDA-Public Use
  Company Number: None

PATIENT
  Age: 7 Year
  Sex: Male

DRUGS (16)
  1. VIGABATRIN [Suspect]
     Active Substance: VIGABATRIN
     Indication: Bacterial infection
     Dosage: FREQUENCY : TWICE A DAY;?
     Route: 048
  2. VIGABATRIN [Suspect]
     Active Substance: VIGABATRIN
     Indication: Pseudomonas infection
  3. CLOBAZAM [Concomitant]
     Active Substance: CLOBAZAM
  4. EPIDIOLEX [Concomitant]
     Active Substance: CANNABIDIOL
  5. IPRATROPIUM BROMIDE [Concomitant]
     Active Substance: IPRATROPIUM BROMIDE\IPRATROPIUM BROMIDE ANHYDROUS
  6. SABRIL [Concomitant]
     Active Substance: VIGABATRIN
  7. BUDESONIDE [Concomitant]
     Active Substance: BUDESONIDE
  8. SODIUM CHLORIDE [Concomitant]
     Active Substance: SODIUM CHLORIDE
  9. SODIUM CHLORIDE [Concomitant]
     Active Substance: SODIUM CHLORIDE
  10. GABAPENTIN [Concomitant]
     Active Substance: GABAPENTIN
  11. LACTULOSE [Concomitant]
     Active Substance: LACTULOSE
  12. VIMPAT [Concomitant]
     Active Substance: LACOSAMIDE
  13. GLYCOPYRROLATE [Concomitant]
     Active Substance: GLYCOPYRROLATE
  14. CLONAZEPAM [Concomitant]
     Active Substance: CLONAZEPAM
  15. ALBUTEROL SULFATE [Concomitant]
     Active Substance: ALBUTEROL SULFATE
  16. MONTELUKAST SODIUM [Concomitant]
     Active Substance: MONTELUKAST SODIUM

REACTIONS (1)
  - Blindness [None]

NARRATIVE: CASE EVENT DATE: 20230520
